FAERS Safety Report 9574937 (Version 2)
Quarter: 2013Q4

REPORT INFORMATION
  Report Type: Spontaneous
  Country: US (occurrence: US)
  Receive Date: 20131001
  Receipt Date: 20131001
  Transmission Date: 20140711
  Serious: No
  Sender: FDA-Public Use
  Company Number: US-PURDUE-USA-2012-0083644

PATIENT
  Age: 65 Year
  Sex: Female
  Weight: 52.61 kg

DRUGS (8)
  1. BUTRANS [Suspect]
     Indication: NEURALGIA
     Dosage: 10 MCG, Q1H
     Route: 062
     Dates: start: 20120310, end: 20120325
  2. BUTRANS [Suspect]
     Indication: PAIN
  3. KLONOPIN [Concomitant]
     Indication: PRODUCT USED FOR UNKNOWN INDICATION
  4. NEURONTIN [Concomitant]
  5. ALTENOL [Concomitant]
     Indication: PRODUCT USED FOR UNKNOWN INDICATION
     Dosage: 50 MG, BID
  6. ASPIRIN [Concomitant]
     Indication: PRODUCT USED FOR UNKNOWN INDICATION
     Dosage: 81 MG, DAILY
  7. VIT D [Concomitant]
     Indication: PRODUCT USED FOR UNKNOWN INDICATION
     Dosage: 2000 IU, UNK
  8. DITROPAN [Suspect]
     Indication: BLADDER DISORDER

REACTIONS (10)
  - Aggression [Unknown]
  - Fear [Unknown]
  - Screaming [Unknown]
  - Feeling abnormal [Unknown]
  - Dizziness [Recovered/Resolved]
  - Asthenia [Recovered/Resolved]
  - Somnolence [Unknown]
  - Pain [Not Recovered/Not Resolved]
  - Drug ineffective [Not Recovered/Not Resolved]
  - Nausea [Recovered/Resolved]
